FAERS Safety Report 13126282 (Version 1)
Quarter: 2017Q1

REPORT INFORMATION
  Report Type: Report from Study
  Country: FR (occurrence: FR)
  Receive Date: 20170118
  Receipt Date: 20170118
  Transmission Date: 20170428
  Serious: Yes (Other)
  Sender: FDA-Public Use
  Company Number: FR-PFIZER INC-9806053

PATIENT
  Age: 33 Year
  Sex: Male

DRUGS (5)
  1. PENTAMIDINE [Concomitant]
     Active Substance: PENTAMIDINE
     Dosage: UNK
  2. FARMORUBICIN [Concomitant]
     Active Substance: EPIRUBICIN HYDROCHLORIDE
     Dosage: UNK
  3. ELDISINE [Concomitant]
     Active Substance: VINDESINE SULFATE
     Dosage: UNK
  4. BLEOMYCIN [Suspect]
     Active Substance: BLEOMYCIN SULFATE
     Indication: KAPOSI^S SARCOMA
     Dosage: 380 MG, UNK
  5. DIDANOSINE. [Concomitant]
     Active Substance: DIDANOSINE
     Dosage: UNK

REACTIONS (2)
  - Extremity necrosis [Unknown]
  - Raynaud^s phenomenon [Unknown]
